FAERS Safety Report 13337432 (Version 1)
Quarter: 2017Q1

REPORT INFORMATION
  Report Type: Spontaneous
  Country: US (occurrence: US)
  Receive Date: 20170315
  Receipt Date: 20170315
  Transmission Date: 20170428
  Serious: No
  Sender: FDA-Public Use
  Company Number: None

PATIENT

DRUGS (1)
  1. ZOLPIDEM TART 10 MG [Suspect]
     Active Substance: ZOLPIDEM TARTRATE

REACTIONS (2)
  - Initial insomnia [None]
  - Drug effect decreased [None]

NARRATIVE: CASE EVENT DATE: 20170313
